FAERS Safety Report 6623498-7 (Version None)
Quarter: 2010Q1

REPORT INFORMATION
  Report Type: 
  Country: None (occurrence: None)
  Receive Date: 20100310
  Receipt Date: 20100224
  Transmission Date: 20100710
  Serious: Yes (Hospitalization)
  Sender: FDA-Public Use
  Company Number: FR-CELGENEUS-056-21880-09102367

PATIENT
  Sex: Male
  Weight: 67 kg

DRUGS (17)
  1. REVLIMID [Suspect]
     Route: 048
     Dates: start: 20091002, end: 20091012
  2. REVLIMID [Suspect]
     Route: 048
     Dates: end: 20091120
  3. REVLIMID [Suspect]
     Route: 048
     Dates: start: 20090729
  4. ARACYTINE [Suspect]
     Route: 058
     Dates: start: 20091002, end: 20091006
  5. ARACYTINE [Suspect]
     Route: 058
     Dates: end: 20091120
  6. ARACYTINE [Suspect]
     Route: 058
     Dates: start: 20090729
  7. DAUNORUBICIN HCL [Suspect]
     Route: 051
     Dates: start: 20091002, end: 20091002
  8. DAUNORUBICIN HCL [Suspect]
     Route: 051
     Dates: end: 20091120
  9. DAUNORUBICIN HCL [Suspect]
     Route: 051
     Dates: start: 20090729
  10. NEXIUM [Concomitant]
     Indication: DRUG USE FOR UNKNOWN INDICATION
     Route: 051
  11. ZELITREX [Concomitant]
     Indication: DRUG USE FOR UNKNOWN INDICATION
     Route: 048
     Dates: start: 20090902
  12. NOVORAPID [Concomitant]
     Indication: DRUG USE FOR UNKNOWN INDICATION
     Route: 065
  13. NOVOMIX [Concomitant]
     Indication: DRUG USE FOR UNKNOWN INDICATION
     Route: 065
  14. LANTUS [Concomitant]
     Indication: DRUG USE FOR UNKNOWN INDICATION
     Route: 065
  15. NEXIUM [Concomitant]
     Indication: DRUG USE FOR UNKNOWN INDICATION
     Route: 065
  16. BACTRIM DS [Concomitant]
     Indication: DRUG USE FOR UNKNOWN INDICATION
     Route: 065
  17. SPECIAFOLDINE [Concomitant]
     Indication: DRUG USE FOR UNKNOWN INDICATION
     Route: 065

REACTIONS (2)
  - ABDOMINAL PAIN [None]
  - FEBRILE BONE MARROW APLASIA [None]
